FAERS Safety Report 11371945 (Version 1)
Quarter: 2015Q3

REPORT INFORMATION
  Report Type: Spontaneous
  Country: US (occurrence: US)
  Receive Date: 20150812
  Receipt Date: 20150812
  Transmission Date: 20151125
  Serious: Yes (Other)
  Sender: FDA-Public Use
  Company Number: US-SA-2015SA118337

PATIENT
  Age: 45 Year
  Sex: Female

DRUGS (1)
  1. ALLEGRA-D [Suspect]
     Active Substance: FEXOFENADINE\PSEUDOEPHEDRINE
     Indication: MULTIPLE ALLERGIES
     Dosage: START DATE: 1 MONTH AGO
     Route: 048

REACTIONS (3)
  - Feeling abnormal [Unknown]
  - Bronchitis [Unknown]
  - Drug ineffective [Unknown]
